FAERS Safety Report 8507658 (Version 2)
Quarter: 2012Q4

REPORT INFORMATION
  Report Type: 
  Country: US (occurrence: US)
  Receive Date: 20120412
  Receipt Date: 20120911
  Transmission Date: 20130627
  Serious: No
  Sender: FDA-Public Use
  Company Number: US-ASTRAZENECA-2011SE68435

PATIENT
  Age: 62 Year
  Sex: Female

DRUGS (14)
  1. NEXIUM [Suspect]
     Route: 048
  2. LISINOPRIL [Suspect]
     Route: 048
  3. AVONEX [Concomitant]
     Dosage: 30MCG/0.5 ML, ONCE A WEEK
     Route: 030
  4. CRANBERRY EXTRACT [Concomitant]
     Dosage: AS DIRECTED
     Route: 065
  5. LASIX [Concomitant]
     Route: 048
  6. LASIX [Concomitant]
     Route: 048
  7. OXYBUTYNIN CHLORIDE [Concomitant]
     Route: 048
  8. PROAIR [Concomitant]
     Dosage: 2 PUFFS PRN Q 4-6 HOURS
  9. KLOR-CON [Concomitant]
     Dosage: M20, 20 MEQ CR 1 BY MOUTH DAILY
     Route: 048
  10. PROZAC [Concomitant]
     Route: 048
  11. LEVOTHYROXINE SODIUM [Concomitant]
     Route: 048
  12. ACIDOPHILUS [Concomitant]
     Route: 065
  13. MACROBID [Concomitant]
     Route: 048
  14. NYSTATIN [Concomitant]
     Dosage: 100000 UNIT/GM CREA, APPLY TO AFFECT AREAS BID UNTIL RASH GONE
     Route: 065

REACTIONS (26)
  - Vulvovaginal candidiasis [Unknown]
  - Hypothyroidism [Unknown]
  - Chest pain [Unknown]
  - Blood pressure increased [Unknown]
  - Pharyngitis [Unknown]
  - Haematochezia [Unknown]
  - Urinary incontinence [Unknown]
  - Skin lesion [Unknown]
  - Visual acuity reduced [Unknown]
  - Hypoacusis [Unknown]
  - Disturbance in social behaviour [Unknown]
  - Cough [Unknown]
  - Cystitis [Unknown]
  - Obesity [Unknown]
  - Acute sinusitis [Unknown]
  - Fatigue [Unknown]
  - Gastrooesophageal reflux disease [Unknown]
  - Urinary tract infection [Unknown]
  - Multiple sclerosis [Unknown]
  - Malaise [Unknown]
  - Rash [Unknown]
  - Oedema peripheral [Unknown]
  - Constipation [Unknown]
  - Depression [Unknown]
  - Drug hypersensitivity [Unknown]
  - Somnolence [Unknown]
